FAERS Safety Report 9252247 (Version 1)
Quarter: 2013Q2

REPORT INFORMATION
  Report Type: Spontaneous
  Country: IT (occurrence: IT)
  Receive Date: 20130424
  Receipt Date: 20130424
  Transmission Date: 20140414
  Serious: Yes (Hospitalization)
  Sender: FDA-Public Use
  Company Number: PHHY2013IT038129

PATIENT
  Sex: Female

DRUGS (3)
  1. ALPRAZOLAM [Suspect]
     Dosage: 5 ML, TOTAL DOSE
     Route: 048
     Dates: start: 20130412, end: 20130412
  2. TRITTICO [Concomitant]
  3. ATENOLOL [Concomitant]

REACTIONS (3)
  - Sopor [Recovering/Resolving]
  - Face injury [Recovering/Resolving]
  - Medication error [Recovering/Resolving]
